FAERS Safety Report 6369608-0 (Version None)
Quarter: 2009Q3

REPORT INFORMATION
  Report Type: 
  Country: None (occurrence: None)
  Receive Date: 20090923
  Receipt Date: 20090914
  Transmission Date: 20100115
  Serious: Yes (Hospitalization, Other)
  Sender: FDA-Public Use
  Company Number: PHHY2009CA37059

PATIENT
  Sex: Male

DRUGS (4)
  1. CLOZARIL [Suspect]
     Indication: SCHIZOPHRENIA
     Dosage: UNK
     Dates: start: 20090813, end: 20090831
  2. FLUPENTIXOL [Concomitant]
     Dosage: UNK
     Dates: end: 20090830
  3. HALDOL [Concomitant]
  4. RISPERDAL [Concomitant]
     Dosage: UNK
     Dates: end: 20090830

REACTIONS (23)
  - ABDOMINAL PAIN [None]
  - ABNORMAL BEHAVIOUR [None]
  - ALANINE AMINOTRANSFERASE INCREASED [None]
  - ASTHENIA [None]
  - BLOOD CREATINE PHOSPHOKINASE INCREASED [None]
  - BLOOD GLUCOSE INCREASED [None]
  - BLOOD PRESSURE FLUCTUATION [None]
  - BODY TEMPERATURE INCREASED [None]
  - DECREASED APPETITE [None]
  - EOSINOPHIL COUNT INCREASED [None]
  - FOLLICULITIS [None]
  - HEADACHE [None]
  - HEART RATE INCREASED [None]
  - HYPERHIDROSIS [None]
  - MYOCARDITIS [None]
  - NEUROLEPTIC MALIGNANT SYNDROME [None]
  - PYREXIA [None]
  - RASH [None]
  - SINUS TACHYCARDIA [None]
  - TACHYCARDIA [None]
  - TEMPERATURE REGULATION DISORDER [None]
  - TROPONIN INCREASED [None]
  - WHITE BLOOD CELL COUNT INCREASED [None]
